FAERS Safety Report 8965547 (Version 1)
Quarter: 2012Q4

REPORT INFORMATION
  Report Type: Spontaneous
  Country: US (occurrence: None)
  Receive Date: 20121212
  Receipt Date: 20121212
  Transmission Date: 20130627
  Serious: Yes (Life-Threatening)
  Sender: FDA-Public Use
  Company Number: None

PATIENT
  Age: 67 Year
  Sex: Male
  Weight: 78.2 kg

DRUGS (2)
  1. ALTEPLASE [Suspect]
     Indication: ISCHEMIC STROKE
     Dosage: 7.2mg  once  IV bolus
     Route: 040
     Dates: start: 20121208, end: 20121208
  2. ALTEPLASE [Suspect]
     Indication: ISCHEMIC STROKE
     Dosage: 64.8mg  once   IV Drip
     Route: 041

REACTIONS (3)
  - Anaphylactic reaction [None]
  - Cerebrovascular accident [None]
  - Unresponsive to stimuli [None]
